FAERS Safety Report 10035889 (Version 1)
Quarter: 2014Q1

REPORT INFORMATION
  Report Type: Spontaneous
  Country: US (occurrence: US)
  Receive Date: 20140325
  Receipt Date: 20140325
  Transmission Date: 20141002
  Serious: Yes (Hospitalization, Other)
  Sender: FDA-Public Use
  Company Number: US-PFIZER INC-2014082760

PATIENT
  Age: 42 Year
  Sex: Male
  Weight: 83.9 kg

DRUGS (1)
  1. PRISTIQ [Suspect]
     Dosage: 50 MG, 1X/DAY
     Route: 048
     Dates: start: 20140227, end: 20140303

REACTIONS (3)
  - Peripheral coldness [Unknown]
  - Intracardiac thrombus [Unknown]
  - Thrombosis [Unknown]
